FAERS Safety Report 4409734-6 (Version None)
Quarter: 2004Q3

REPORT INFORMATION
  Report Type: 
  Country: None (occurrence: None)
  Receive Date: 20040728
  Receipt Date: 20040630
  Transmission Date: 20050211
  Serious: Yes (Life-Threatening)
  Sender: FDA-Public Use
  Company Number: 200412229JP

PATIENT
  Age: 70 Year
  Sex: Female
  Weight: 44.6 kg

DRUGS (10)
  1. KETEK [Suspect]
     Indication: BRONCHITIS ACUTE
     Route: 048
     Dates: start: 20040618, end: 20040620
  2. ZESULAN [Suspect]
     Indication: BRONCHITIS ACUTE
     Route: 048
     Dates: start: 20040618, end: 20040621
  3. RYTHMODAN [Suspect]
     Indication: ATRIAL FIBRILLATION
     Route: 048
     Dates: start: 19941101, end: 20040621
  4. SOLANTAL [Concomitant]
     Indication: BRONCHITIS ACUTE
     Route: 048
     Dates: start: 20040618, end: 20040621
  5. NOLEPTAN [Concomitant]
     Indication: BRONCHITIS ACUTE
     Route: 048
     Dates: start: 20040618, end: 20040621
  6. MUCODYNE [Concomitant]
     Indication: BRONCHITIS ACUTE
     Route: 048
     Dates: start: 20040618, end: 20040621
  7. LANIRAPID [Concomitant]
     Indication: ATRIAL FIBRILLATION
     Route: 048
     Dates: start: 19960911, end: 20040621
  8. TICLOPIDINE HCL [Concomitant]
     Indication: CEREBRAL INFARCTION
     Route: 048
     Dates: start: 19960619
  9. SELECTOL [Concomitant]
     Indication: HYPERTENSION
     Route: 048
     Dates: start: 20040109, end: 20040821
  10. BLOPRESS [Concomitant]
     Indication: HYPERTENSION
     Route: 048
     Dates: start: 20040604

REACTIONS (7)
  - CARDIAC PACEMAKER MALFUNCTION [None]
  - ELECTROCARDIOGRAM ABNORMAL [None]
  - ELECTROCARDIOGRAM P WAVE ABNORMAL [None]
  - LOSS OF CONSCIOUSNESS [None]
  - SYNCOPE [None]
  - TORSADE DE POINTES [None]
  - VIRAL INFECTION [None]
